FAERS Safety Report 18407890 (Version 1)
Quarter: 2020Q4

REPORT INFORMATION
  Report Type: Spontaneous
  Country: TR (occurrence: TR)
  Receive Date: 20201021
  Receipt Date: 20201021
  Transmission Date: 20210114
  Serious: No
  Sender: FDA-Public Use
  Company Number: TR-ALKEM LABORATORIES LIMITED-TR-ALKEM-2020-04664

PATIENT
  Age: 66 Year
  Sex: Male

DRUGS (2)
  1. TRIAMCINOLONE ACETONIDE. [Suspect]
     Active Substance: TRIAMCINOLONE ACETONIDE
     Indication: EYE DISORDER PROPHYLAXIS
     Dosage: 2 MILLIGRAM
  2. AFLIBERCEPT [Suspect]
     Active Substance: AFLIBERCEPT
     Indication: EYE DISORDER PROPHYLAXIS
     Dosage: 2 MILLIGRAM

REACTIONS (2)
  - Hypopyon [Recovered/Resolved]
  - Non-infectious endophthalmitis [Recovered/Resolved]
